FAERS Safety Report 18753708 (Version 2)
Quarter: 2021Q1

REPORT INFORMATION
  Report Type: Report from Study
  Country: None (occurrence: CA)
  Receive Date: 20210118
  Receipt Date: 20210119
  Transmission Date: 20210419
  Serious: Yes (Other)
  Sender: FDA-Public Use
  Company Number: CA-ABBVIE-21K-028-3733707-00

PATIENT
  Sex: Male

DRUGS (2)
  1. RINVOQ [Suspect]
     Active Substance: UPADACITINIB
     Indication: RHEUMATOID ARTHRITIS
     Route: 048
     Dates: start: 20200509, end: 20201209
  2. RINVOQ [Suspect]
     Active Substance: UPADACITINIB
     Route: 048
     Dates: start: 20201220

REACTIONS (4)
  - Malignant melanoma [Unknown]
  - Speech disorder [Unknown]
  - Skin lesion [Unknown]
  - Oral disorder [Recovered/Resolved]

NARRATIVE: CASE EVENT DATE: 2020
